FAERS Safety Report 7111857-8 (Version None)
Quarter: 2010Q4

REPORT INFORMATION
  Report Type: 
  Country: None (occurrence: None)
  Receive Date: 20101119
  Receipt Date: 20101110
  Transmission Date: 20110411
  Serious: No
  Sender: FDA-Public Use
  Company Number: US-BIOGENIDEC-2010BI033163

PATIENT
  Sex: Female

DRUGS (1)
  1. TYSABRI [Suspect]
     Indication: MULTIPLE SCLEROSIS
     Route: 042
     Dates: start: 20100622, end: 20101013

REACTIONS (6)
  - DIZZINESS [None]
  - HYPERSENSITIVITY [None]
  - INFUSION SITE PRURITUS [None]
  - RASH [None]
  - SWOLLEN TONGUE [None]
  - URTICARIA [None]
